FAERS Safety Report 7474622-8 (Version None)
Quarter: 2011Q1

REPORT INFORMATION
  Report Type: 
  Country: None (occurrence: None)
  Receive Date: 20110302
  Receipt Date: 20101006
  Transmission Date: 20110831
  Serious: Yes (Hospitalization)
  Sender: FDA-Public Use
  Company Number: 163-21880-10061732

PATIENT
  Age: 72 Year
  Sex: Male

DRUGS (1)
  1. REVLIMID [Suspect]
     Indication: MULTIPLE MYELOMA
     Dosage: 25 MG, DAILY FOR 21 DAYS, THEN 7 DAYS OFF, PO
     Route: 048
     Dates: start: 20070918

REACTIONS (2)
  - BRONCHITIS [None]
  - MEDICAL DEVICE COMPLICATION [None]
